FAERS Safety Report 8834355 (Version 2)
Quarter: 2012Q4

REPORT INFORMATION
  Report Type: 
  Country: US (occurrence: US)
  Receive Date: 20121010
  Receipt Date: 20121114
  Transmission Date: 20130627
  Serious: No
  Sender: FDA-Public Use
  Company Number: US-ASTRAZENECA-2012SE77158

PATIENT
  Age: 62 Year
  Sex: Female

DRUGS (5)
  1. CAPRELSA [Suspect]
     Route: 048
     Dates: start: 20120712
  2. CAPRELSA [Suspect]
     Route: 048
     Dates: start: 20120913
  3. COREG [Concomitant]
  4. LOSARTAN [Concomitant]
  5. RITALIN [Concomitant]

REACTIONS (4)
  - Pyrexia [Unknown]
  - Cough [Unknown]
  - Rash [Unknown]
  - Fatigue [Unknown]
